FAERS Safety Report 8607262 (Version 3)
Quarter: 2014Q2

REPORT INFORMATION
  Report Type: Spontaneous
  Country: US (occurrence: US)
  Receive Date: 20120611
  Receipt Date: 20140402
  Transmission Date: 20141212
  Serious: Yes (Disabling)
  Sender: FDA-Public Use
  Company Number: US-ASTRAZENECA-2012SE36184

PATIENT
  Age: 33 Year
  Sex: Female

DRUGS (34)
  1. NEXIUM [Suspect]
     Indication: OESOPHAGEAL DISORDER
     Route: 048
     Dates: start: 20051109
  2. NEXIUM [Suspect]
     Indication: ABDOMINAL DISCOMFORT
     Route: 048
     Dates: start: 20051109
  3. NEXIUM [Suspect]
     Indication: OESOPHAGEAL DISORDER
     Route: 048
     Dates: start: 20051114, end: 2011
  4. NEXIUM [Suspect]
     Indication: ABDOMINAL DISCOMFORT
     Route: 048
     Dates: start: 20051114, end: 2011
  5. PRILOSEC [Suspect]
     Route: 048
     Dates: start: 2000
  6. TUMS [Concomitant]
  7. MYLANTA [Concomitant]
     Dates: start: 2000
  8. CALCIUM [Concomitant]
     Dates: start: 2000
  9. TRAMADOL [Concomitant]
     Dates: start: 2003
  10. FOSAMAX [Concomitant]
     Dates: start: 2007
  11. ROLAIDS [Concomitant]
  12. ZYRTEC [Concomitant]
     Dates: start: 20000721
  13. PROPOXYPHENE N /ACET [Concomitant]
     Dosage: 100/650 1 DF DAILY
     Dates: start: 20010308
  14. METRONIDAZOLE [Concomitant]
     Dates: start: 20030103
  15. PROMETHAZINE [Concomitant]
     Indication: NAUSEA
     Dosage: ONE TABLET EVERY 4 TO 6 HOURS AS NEEDED
     Dates: start: 20030304
  16. PROMETHAZINE [Concomitant]
     Indication: VOMITING
     Dosage: ONE TABLET EVERY 4 TO 6 HOURS AS NEEDED
     Dates: start: 20030304
  17. METOCLOPRAMIDE [Concomitant]
     Indication: NAUSEA
     Dates: start: 20030327
  18. METOCLOPRAMIDE [Concomitant]
     Indication: VOMITING
     Dates: start: 20030327
  19. ZOFRAN [Concomitant]
     Indication: NAUSEA
     Dates: start: 20030331
  20. ZOFRAN [Concomitant]
     Indication: VOMITING
     Dates: start: 20030331
  21. KYTRIL [Concomitant]
     Dates: start: 20030711
  22. FE TINIC [Concomitant]
     Dates: start: 20030807
  23. CHROMAGEN [Concomitant]
     Dates: start: 20031016
  24. EFFEXOR [Concomitant]
     Dates: start: 20031016
  25. ACIPHEX [Concomitant]
     Route: 048
     Dates: start: 20051104
  26. BUDEPRION SR [Concomitant]
     Dates: start: 20060414
  27. WELLBUTRIN XL [Concomitant]
     Route: 048
     Dates: start: 20070423
  28. SULFA/TRIM [Concomitant]
     Dosage: 800/160MG ONE TABLET TWO TIMES A DAY
     Route: 048
     Dates: start: 20070904
  29. TAMIFLU [Concomitant]
     Route: 048
     Dates: start: 20080821
  30. BONIVA [Concomitant]
     Route: 048
     Dates: start: 20080225
  31. ALENDRONATE SOD [Concomitant]
     Route: 048
     Dates: start: 20080414
  32. FEXOFENADINE [Concomitant]
     Route: 048
     Dates: start: 20100617
  33. CYCLOBENZAPRINE HCL [Concomitant]
     Dates: start: 20101117
  34. DICLOFENAC SOD [Concomitant]
     Route: 048
     Dates: start: 20120831

REACTIONS (11)
  - Lower limb fracture [Unknown]
  - Back disorder [Unknown]
  - Osteoporosis [Unknown]
  - Multiple fractures [Unknown]
  - Oesophageal disorder [Unknown]
  - Gastrointestinal disorder [Unknown]
  - Cervical dysplasia [Unknown]
  - Hand fracture [Unknown]
  - Arthritis [Unknown]
  - Hyperthyroidism [Unknown]
  - Osteopenia [Unknown]
